FAERS Safety Report 18317008 (Version 1)
Quarter: 2020Q3

REPORT INFORMATION
  Report Type: Spontaneous
  Country: QA (occurrence: QA)
  Receive Date: 20200928
  Receipt Date: 20200928
  Transmission Date: 20201103
  Serious: Yes (Hospitalization, Other)
  Sender: FDA-Public Use
  Company Number: QA-LUPIN PHARMACEUTICALS INC.-2020-06343

PATIENT
  Age: 43 Year
  Sex: Male

DRUGS (5)
  1. ETHIONAMIDE [Concomitant]
     Active Substance: ETHIONAMIDE
     Indication: MENINGITIS TUBERCULOUS
     Dosage: 500 MILLIGRAM, QD
     Route: 048
  2. MOXIFLOXACIN. [Concomitant]
     Active Substance: MOXIFLOXACIN
     Indication: MENINGITIS TUBERCULOUS
     Dosage: 400 MILLIGRAM, QD
     Route: 048
  3. PYRIDOXINE [Concomitant]
     Active Substance: PYRIDOXINE
     Indication: MENINGITIS TUBERCULOUS
     Dosage: 50 MILLIGRAM, QD
     Route: 048
  4. RIFAMPIN. [Suspect]
     Active Substance: RIFAMPIN
     Indication: MENINGITIS TUBERCULOUS
     Dosage: 600 MILLIGRAM, QD
     Route: 048
  5. CYCLOSERINE. [Concomitant]
     Active Substance: CYCLOSERINE
     Indication: MENINGITIS TUBERCULOUS
     Dosage: 500 MILLIGRAM
     Route: 048

REACTIONS (3)
  - Respiratory failure [Recovered/Resolved]
  - Hypoxia [Recovered/Resolved]
  - Pneumonitis [Recovered/Resolved]
